FAERS Safety Report 21872870 (Version 3)
Quarter: 2023Q1

REPORT INFORMATION
  Report Type: Report from Study
  Country: US (occurrence: US)
  Receive Date: 20230117
  Receipt Date: 20230208
  Transmission Date: 20230418
  Serious: Yes (Hospitalization, Other)
  Sender: FDA-Public Use
  Company Number: US-GILEAD-2023-0612726

PATIENT
  Sex: Female

DRUGS (4)
  1. AMBRISENTAN [Suspect]
     Active Substance: AMBRISENTAN
     Indication: Pulmonary arterial hypertension
     Dosage: LETAIRIS 10MG ORALLY DAILY , QD
     Route: 048
     Dates: start: 20220802
  2. OFEV [Concomitant]
     Active Substance: NINTEDANIB
  3. TREPROSTINIL [Concomitant]
     Active Substance: TREPROSTINIL
  4. XARELTO [Concomitant]
     Active Substance: RIVAROXABAN

REACTIONS (3)
  - Pneumonia [Unknown]
  - Sepsis [Unknown]
  - Hypoxia [Unknown]
